FAERS Safety Report 13937565 (Version 2)
Quarter: 2017Q4

REPORT INFORMATION
  Report Type: Spontaneous
  Country: JP (occurrence: JP)
  Receive Date: 20170905
  Receipt Date: 20171030
  Transmission Date: 20180320
  Serious: Yes (Death)
  Sender: FDA-Public Use
  Company Number: JP-SHIONOGI, INC.-2017000684

PATIENT
  Age: 52 Year
  Sex: Male
  Weight: 51 kg

DRUGS (10)
  1. RINDERON                           /00008501/ [Concomitant]
     Active Substance: BETAMETHASONE
     Indication: METASTASES TO LUNG
  2. RINDERON                           /00008501/ [Concomitant]
     Active Substance: BETAMETHASONE
     Indication: CANCER PAIN
  3. SYMPROIC [Suspect]
     Active Substance: NALDEMEDINE
     Indication: CONSTIPATION
     Dosage: 0.2 MG, QD
     Route: 048
     Dates: start: 20170731, end: 20170801
  4. DEPAS [Concomitant]
     Active Substance: ETIZOLAM
     Dosage: 0.5 MG, QD
     Route: 048
     Dates: start: 20170724, end: 20170823
  5. URSODEOXYCHOLIC ACID [Concomitant]
     Active Substance: URSODIOL
     Indication: JAUNDICE CHOLESTATIC
     Dosage: 100 MG, TID
     Route: 048
     Dates: start: 20170601, end: 20170823
  6. MAGNESIUM OXIDE. [Concomitant]
     Active Substance: MAGNESIUM OXIDE
     Indication: CONSTIPATION
     Dosage: UNK
     Route: 065
  7. RINDERON                           /00008501/ [Concomitant]
     Active Substance: BETAMETHASONE
     Indication: METASTASES TO LIVER
  8. E FEN [Concomitant]
     Indication: CANCER PAIN
     Dosage: 100 ?G, PRN
     Route: 002
     Dates: start: 20170601, end: 20170823
  9. RINDERON                           /00008501/ [Concomitant]
     Active Substance: BETAMETHASONE
     Indication: GASTRIC CANCER
     Dosage: 1.0 MG, QD
     Route: 048
     Dates: start: 20170603, end: 20170823
  10. FENTOS [Concomitant]
     Active Substance: FENTANYL
     Indication: CANCER PAIN
     Dosage: 4 MG, QD
     Route: 062
     Dates: start: 20170603, end: 20170823

REACTIONS (2)
  - Diarrhoea [Recovered/Resolved]
  - Gastric cancer [Fatal]

NARRATIVE: CASE EVENT DATE: 20170801
